FAERS Safety Report 4551915-5 (Version None)
Quarter: 2004Q4

REPORT INFORMATION
  Report Type: 
  Country: None (occurrence: None)
  Receive Date: 20041217
  Receipt Date: 20040823
  Transmission Date: 20050328
  Serious: No
  Sender: FDA-Public Use
  Company Number: 2004-BP-07160BP

PATIENT
  Age: 82 Year
  Sex: Female

DRUGS (5)
  1. SPIRIVA [Suspect]
     Indication: CHRONIC OBSTRUCTIVE AIRWAYS DISEASE
     Dosage: 18 MCG (18 MCG, 18 MCG ONCE DAILY) IH
     Route: 055
     Dates: start: 20040815
  2. PREDNISONE [Concomitant]
  3. ALBUTEROL [Concomitant]
  4. XANAX [Concomitant]
  5. LEXAPRO [Concomitant]

REACTIONS (3)
  - COUGH [None]
  - DIZZINESS [None]
  - DRY MOUTH [None]
